FAERS Safety Report 9084933 (Version 1)
Quarter: 2013Q1

REPORT INFORMATION
  Report Type: Report from Study
  Country: US (occurrence: US)
  Receive Date: 20130131
  Receipt Date: 20130131
  Transmission Date: 20140127
  Serious: No
  Sender: FDA-Public Use
  Company Number: US-ABBOTT-12P-163-0990210-00

PATIENT
  Age: 51 Year
  Sex: Male

DRUGS (8)
  1. HUMIRA [Suspect]
     Indication: CROHN^S DISEASE
     Dates: start: 20120810
  2. ZOLOFT [Concomitant]
     Indication: STRESS
  3. ZOLOFT [Concomitant]
     Indication: CROHN^S DISEASE
  4. TOPROL [Concomitant]
     Indication: ATRIAL FIBRILLATION
  5. MULTAQ [Concomitant]
     Indication: ATRIAL FIBRILLATION
  6. VICODIN [Concomitant]
     Indication: HEADACHE
  7. VICODIN [Concomitant]
     Indication: SINUSITIS
  8. VICODIN [Concomitant]
     Indication: GASTROINTESTINAL PAIN

REACTIONS (3)
  - Skin warm [Not Recovered/Not Resolved]
  - Cough [Not Recovered/Not Resolved]
  - Increased upper airway secretion [Not Recovered/Not Resolved]
